FAERS Safety Report 8464912-4 (Version None)
Quarter: 2012Q2

REPORT INFORMATION
  Report Type: 
  Country: None (occurrence: None)
  Receive Date: 20120626
  Receipt Date: 20120619
  Transmission Date: 20120825
  Serious: Yes (Other)
  Sender: FDA-Public Use
  Company Number: US-JNJFOC-20120604352

PATIENT

DRUGS (18)
  1. RITUXIMAB [Suspect]
     Indication: ACUTE LYMPHOCYTIC LEUKAEMIA
     Dosage: DAYS 1, 11 OF HYPER-CVAD AND DAYS 1, 8 OF MTX-CYTARABINE COURSES
     Route: 065
  2. DOXORUBICIN HCL [Suspect]
     Indication: ACUTE LYMPHOCYTIC LEUKAEMIA
     Route: 042
  3. CYTARABINE [Suspect]
     Indication: BURKITT'S LYMPHOMA
     Route: 065
  4. MONOCLONAL ANTIBODIES [Suspect]
     Indication: BURKITT'S LYMPHOMA
     Dosage: STANDARD DOSE
     Route: 065
  5. RITUXIMAB [Suspect]
     Indication: BURKITT'S LYMPHOMA
     Dosage: DAYS 1, 11 OF HYPER-CVAD AND DAYS 1, 8 OF MTX-CYTARABINE COURSES
     Route: 065
  6. CYCLOPHOSPHAMIDE [Suspect]
     Indication: BURKITT'S LYMPHOMA
     Route: 065
  7. DOXORUBICIN HCL [Suspect]
     Indication: BURKITT'S LYMPHOMA
     Route: 042
  8. METHOTREXATE SODIUM [Suspect]
     Indication: BURKITT'S LYMPHOMA
     Route: 037
  9. MONOCLONAL ANTIBODIES [Suspect]
     Indication: ACUTE LYMPHOCYTIC LEUKAEMIA
     Dosage: STANDARD DOSE
     Route: 065
  10. METHOTREXATE SODIUM [Suspect]
     Indication: PROPHYLAXIS
     Route: 037
  11. CYCLOPHOSPHAMIDE [Suspect]
     Indication: ACUTE LYMPHOCYTIC LEUKAEMIA
     Route: 065
  12. DEXAMETHASONE [Suspect]
     Indication: BURKITT'S LYMPHOMA
     Route: 065
  13. METHOTREXATE SODIUM [Suspect]
     Indication: ACUTE LYMPHOCYTIC LEUKAEMIA
     Route: 037
  14. CYTARABINE [Suspect]
     Indication: ACUTE LYMPHOCYTIC LEUKAEMIA
     Route: 065
  15. VINCRISTINE [Suspect]
     Indication: ACUTE LYMPHOCYTIC LEUKAEMIA
     Route: 065
  16. VINCRISTINE [Suspect]
     Indication: BURKITT'S LYMPHOMA
     Route: 065
  17. DEXAMETHASONE [Suspect]
     Indication: ACUTE LYMPHOCYTIC LEUKAEMIA
     Route: 065
  18. UNKNOWN MEDICATION [Concomitant]
     Indication: PROPHYLAXIS
     Route: 065

REACTIONS (2)
  - TURNER'S SYNDROME [None]
  - MYELOID LEUKAEMIA [None]
